FAERS Safety Report 5820228-3 (Version None)
Quarter: 2008Q3

REPORT INFORMATION
  Report Type: 
  Country: None (occurrence: None)
  Receive Date: 20080724
  Receipt Date: 20080723
  Transmission Date: 20090109
  Serious: Yes (Hospitalization)
  Sender: FDA-Public Use
  Company Number: PHEH2001US04498

PATIENT
  Sex: Male
  Weight: 88 kg

DRUGS (3)
  1. CERTICAN [Interacting]
     Indication: RENAL TRANSPLANT
     Dosage: 1.5 MG, BID
     Route: 048
     Dates: start: 19990513
  2. NEORAL [Suspect]
     Indication: RENAL TRANSPLANT
     Dosage: 125/100 MG QD
     Route: 048
     Dates: start: 20000831
  3. PREDNISONE TAB [Concomitant]
     Indication: RENAL TRANSPLANT

REACTIONS (6)
  - BLOOD CREATININE INCREASED [None]
  - CHRONIC ALLOGRAFT NEPHROPATHY [None]
  - DRUG INTERACTION [None]
  - NEPHROPATHY [None]
  - NEPHROSCLEROSIS [None]
  - RENAL ARTERIOSCLEROSIS [None]
